FAERS Safety Report 9520717 (Version 3)
Quarter: 2013Q4

REPORT INFORMATION
  Report Type: Spontaneous
  Country: NL (occurrence: NL)
  Receive Date: 20130913
  Receipt Date: 20131022
  Transmission Date: 20140711
  Serious: Yes (Death, Other)
  Sender: FDA-Public Use
  Company Number: NL-ALEXION PHARMACEUTICALS INC.-A201302150

PATIENT
  Age: 80 Year
  Sex: Female

DRUGS (6)
  1. SOLIRIS 300MG [Suspect]
     Indication: PAROXYSMAL NOCTURNAL HAEMOGLOBINURIA
     Dosage: 600 MG, TWICE WEELY
     Route: 042
     Dates: start: 2005
  2. SOLIRIS 300MG [Suspect]
     Dosage: 900 MG, Q2W
     Route: 042
     Dates: end: 20130917
  3. FOLIC ACID [Concomitant]
  4. VITAMIN B COMPLEX [Concomitant]
  5. PANTOPRAZOL [Concomitant]
  6. METOPROLOL [Concomitant]

REACTIONS (7)
  - Pancreatic carcinoma metastatic [Fatal]
  - Bedridden [Not Recovered/Not Resolved]
  - Anaemia [Unknown]
  - Chromaturia [Unknown]
  - Asthenia [Not Recovered/Not Resolved]
  - Decreased appetite [Not Recovered/Not Resolved]
  - Haematuria [Unknown]
